FAERS Safety Report 15766720 (Version 3)
Quarter: 2019Q1

REPORT INFORMATION
  Report Type: Report from Study
  Country: US (occurrence: US)
  Receive Date: 20181227
  Receipt Date: 20190304
  Transmission Date: 20190417
  Serious: Yes (Other)
  Sender: FDA-Public Use
  Company Number: US-SA-2018SA393431

PATIENT
  Age: 66 Year
  Sex: Male

DRUGS (5)
  1. INSULIN GLARGINE/LIXISENATIDE [Suspect]
     Active Substance: INSULIN GLARGINE\LIXISENATIDE
     Dosage: 50 U, UNK
     Dates: start: 20160201
  2. TRAJENTA [Concomitant]
     Active Substance: LINAGLIPTIN
     Dosage: UNK UNK, UNK
  3. TRULICITY [Concomitant]
     Active Substance: DULAGLUTIDE
     Dosage: UNK
  4. METFORMIN [Concomitant]
     Active Substance: METFORMIN HYDROCHLORIDE
     Dosage: UNK UNK, UNK
  5. SOLOSTAR [Suspect]
     Active Substance: DEVICE
     Dosage: 50 U, UNK
     Dates: start: 20160201

REACTIONS (7)
  - Joint injury [Unknown]
  - Cataract operation [Unknown]
  - Surgery [Unknown]
  - Hearing disability [Unknown]
  - Glycosylated haemoglobin increased [Unknown]
  - Dementia [Unknown]
  - Weight decreased [Unknown]

NARRATIVE: CASE EVENT DATE: 20181217
